FAERS Safety Report 4819314-6 (Version None)
Quarter: 2005Q4

REPORT INFORMATION
  Report Type: 
  Country: None (occurrence: None)
  Receive Date: 20051103
  Receipt Date: 20050802
  Transmission Date: 20060501
  Serious: Yes (Hospitalization, Disabling)
  Sender: FDA-Public Use
  Company Number: US-ROCHE-412793

PATIENT
  Age: 45 Year
  Sex: Male
  Weight: 80 kg

DRUGS (7)
  1. PEGASYS [Suspect]
     Indication: HEPATITIS C
     Route: 065
     Dates: start: 20050323, end: 20050615
  2. PEGASYS [Suspect]
     Route: 065
     Dates: start: 20050615
  3. REBETOL [Suspect]
     Indication: HEPATITIS C
     Route: 048
     Dates: start: 20050323, end: 20050505
  4. REBETOL [Suspect]
     Dosage: DOSE DECREASED.
     Route: 048
     Dates: start: 20050625
  5. ACETAMINOPHEN [Concomitant]
  6. PROZAC [Concomitant]
     Indication: ANTIDEPRESSANT THERAPY
     Dates: start: 20050323
  7. PANTOPRAZOLE SODIUM [Concomitant]

REACTIONS (4)
  - ABSCESS [None]
  - PROSTATITIS [None]
  - URINARY TRACT INFECTION [None]
  - URINARY TRACT INFECTION STAPHYLOCOCCAL [None]
